FAERS Safety Report 7148866-9 (Version None)
Quarter: 2010Q4

REPORT INFORMATION
  Report Type: 
  Country: None (occurrence: None)
  Receive Date: 20101209
  Receipt Date: 20101125
  Transmission Date: 20110411
  Serious: Yes (Other)
  Sender: FDA-Public Use
  Company Number: JP-ASTRAZENECA-2010SE56298

PATIENT
  Sex: Female

DRUGS (2)
  1. OMEPRAL [Suspect]
     Indication: REFLUX OESOPHAGITIS
     Route: 048
     Dates: start: 20100901
  2. OMEPRAL [Suspect]
     Dosage: BETWEEN 10 MG OR 20 MG
     Route: 048

REACTIONS (4)
  - ANXIETY [None]
  - FEAR [None]
  - IRRITABILITY [None]
  - SUICIDAL IDEATION [None]
